FAERS Safety Report 18542013 (Version 1)
Quarter: 2020Q4

REPORT INFORMATION
  Report Type: Spontaneous
  Country: US (occurrence: US)
  Receive Date: 20201124
  Receipt Date: 20201124
  Transmission Date: 20210114
  Serious: No
  Sender: FDA-Public Use
  Company Number: US-NEXGEN PHARMA, INC.-2096250

PATIENT
  Age: 22 Year
  Sex: Female

DRUGS (1)
  1. CHENODAL [Suspect]
     Active Substance: CHENODIOL
     Indication: CATARACT
     Route: 048
     Dates: start: 20171223

REACTIONS (7)
  - Apnoea [Unknown]
  - Haemolytic anaemia [Unknown]
  - Pain [Unknown]
  - Chest discomfort [Unknown]
  - Asphyxia [Unknown]
  - Chest pain [Unknown]
  - Myocardial infarction [Unknown]

NARRATIVE: CASE EVENT DATE: 20201027
